FAERS Safety Report 4752913-9 (Version None)
Quarter: 2005Q3

REPORT INFORMATION
  Report Type: 
  Country: None (occurrence: None)
  Receive Date: 20050714
  Receipt Date: 20040831
  Transmission Date: 20060218
  Serious: Yes (Hospitalization)
  Sender: FDA-Public Use
  Company Number: 200416576US

PATIENT
  Sex: Male

DRUGS (1)
  1. TAXOTERE [Suspect]

REACTIONS (5)
  - ERYTHEMA [None]
  - HYPERAESTHESIA [None]
  - INJECTION SITE DISCOLOURATION [None]
  - INJECTION SITE EXTRAVASATION [None]
  - SKIN WARM [None]
